FAERS Safety Report 10068160 (Version 3)
Quarter: 2014Q3

REPORT INFORMATION
  Report Type: Spontaneous
  Country: US (occurrence: US)
  Receive Date: 20140409
  Receipt Date: 20140708
  Transmission Date: 20150326
  Serious: No
  Sender: FDA-Public Use
  Company Number: US-PFIZER INC-2014095755

PATIENT
  Age: 75 Year
  Sex: Male

DRUGS (3)
  1. XALATAN [Suspect]
     Active Substance: LATANOPROST
     Indication: GLAUCOMA
     Dosage: 1 GTT, 1X/DAY (1 DROP QHS)
     Route: 047
  2. XALATAN [Suspect]
     Active Substance: LATANOPROST
     Dosage: 1 GTT, 1X/DAY (1 DROP QHS)
     Route: 047
  3. LYRICA [Suspect]
     Active Substance: PREGABALIN
     Dosage: UNK

REACTIONS (1)
  - Dysphonia [Unknown]
